FAERS Safety Report 14813534 (Version 2)
Quarter: 2018Q2

REPORT INFORMATION
  Report Type: Spontaneous
  Country: FR (occurrence: FR)
  Receive Date: 20180426
  Receipt Date: 20180601
  Transmission Date: 20180711
  Serious: Yes (Other)
  Sender: FDA-Public Use
  Company Number: FR-TEVA-2018-FR-886415

PATIENT
  Age: 84 Year
  Sex: Male

DRUGS (9)
  1. PREDNISOLONE. [Suspect]
     Active Substance: PREDNISOLONE
     Indication: THYMOMA MALIGNANT
     Route: 048
  2. CYANOCOBALAMINE [Concomitant]
     Active Substance: CYANOCOBALAMIN
     Route: 065
  3. ACIDE FOLIQUE [Concomitant]
     Active Substance: FOLIC ACID
     Route: 065
  4. AERIUS [Concomitant]
     Active Substance: DESLORATADINE
     Route: 065
  5. ALIMTA [Suspect]
     Active Substance: PEMETREXED DISODIUM
     Indication: THYMOMA MALIGNANT
     Route: 041
     Dates: start: 201709
  6. EMEND [Suspect]
     Active Substance: APREPITANT
     Indication: THYMOMA MALIGNANT
     Route: 048
     Dates: start: 201709
  7. SOMATULINE [Suspect]
     Active Substance: LANREOTIDE ACETATE
     Indication: OFF LABEL USE
  8. SOMATULINE [Suspect]
     Active Substance: LANREOTIDE ACETATE
     Indication: THYMOMA MALIGNANT
     Route: 058
  9. G-CSF HUMAIN RECOMBINANT ((BACTERIE/ESCHERICHIA COLI)) [Concomitant]
     Route: 065

REACTIONS (4)
  - Visual acuity reduced [Not Recovered/Not Resolved]
  - Keratitis [Not Recovered/Not Resolved]
  - Off label use [Unknown]
  - Retinopathy [Not Recovered/Not Resolved]
